FAERS Safety Report 17048989 (Version 1)
Quarter: 2019Q4

REPORT INFORMATION
  Report Type: Spontaneous
  Country: US (occurrence: US)
  Receive Date: 20191118
  Receipt Date: 20191118
  Transmission Date: 20200122
  Serious: No
  Sender: FDA-Public Use
  Company Number: None

PATIENT
  Age: 32 Year
  Sex: Female
  Weight: 56.7 kg

DRUGS (4)
  1. LOW-OGESTREL (NORGESTREL AND ETHINYL ESTRADIOL) [Concomitant]
     Dates: start: 20190411
  2. TRAZODONE [Concomitant]
     Active Substance: TRAZODONE HYDROCHLORIDE
     Dates: start: 20190805
  3. ESCITALOPRAM [Suspect]
     Active Substance: ESCITALOPRAM OXALATE
     Indication: DEPRESSION
     Route: 048
     Dates: start: 20191010, end: 20191115
  4. ESCITALOPRAM [Suspect]
     Active Substance: ESCITALOPRAM OXALATE
     Indication: ANXIETY
     Route: 048
     Dates: start: 20191010, end: 20191115

REACTIONS (4)
  - Headache [None]
  - Ear discomfort [None]
  - Orthostatic hypertension [None]
  - Dizziness [None]

NARRATIVE: CASE EVENT DATE: 20191024
